FAERS Safety Report 11128293 (Version 1)
Quarter: 2015Q2

REPORT INFORMATION
  Report Type: Spontaneous
  Country: IT (occurrence: IT)
  Receive Date: 20150521
  Receipt Date: 20150521
  Transmission Date: 20150821
  Serious: Yes (Other)
  Sender: FDA-Public Use
  Company Number: IT-PFIZER INC-2015171050

PATIENT
  Age: 51 Year
  Sex: Female

DRUGS (2)
  1. ZOLOFT [Suspect]
     Active Substance: SERTRALINE HYDROCHLORIDE
     Dosage: 3 DF, SINGLE
     Route: 048
     Dates: start: 20150113, end: 20150113
  2. XANAX [Suspect]
     Active Substance: ALPRAZOLAM
     Dosage: 20 MG, SINGLE
     Route: 048
     Dates: start: 20150113, end: 20150113

REACTIONS (2)
  - Drug abuse [Recovering/Resolving]
  - Sopor [Recovering/Resolving]

NARRATIVE: CASE EVENT DATE: 20150113
